FAERS Safety Report 7618759-9 (Version None)
Quarter: 2011Q3

REPORT INFORMATION
  Report Type: 
  Country: None (occurrence: None)
  Receive Date: 20110718
  Receipt Date: 20110714
  Transmission Date: 20111222
  Serious: Yes (Life-Threatening, Hospitalization)
  Sender: FDA-Public Use
  Company Number: GB-ABBOTT-11P-167-0725120-00

PATIENT
  Age: 73 Year
  Sex: Female

DRUGS (3)
  1. HUMIRA [Suspect]
     Indication: RHEUMATOID ARTHRITIS
     Route: 048
     Dates: end: 20110411
  2. LEFLUNOMIDE [Suspect]
     Indication: RHEUMATOID ARTHRITIS
     Route: 048
     Dates: end: 20110411
  3. ACETAMINOPHEN [Concomitant]
     Indication: PAIN
     Route: 048

REACTIONS (2)
  - HYPERTENSION [None]
  - CEREBROVASCULAR ACCIDENT [None]
